FAERS Safety Report 5674628-5 (Version None)
Quarter: 2008Q2

REPORT INFORMATION
  Report Type: 
  Country: None (occurrence: None)
  Receive Date: 20080304
  Receipt Date: 20070917
  Transmission Date: 20081010
  Serious: Yes (Hospitalization)
  Sender: FDA-Public Use
  Company Number: WAES 0709USA03935

PATIENT
  Age: 83 Year
  Sex: Male

DRUGS (6)
  1. PRINIVIL [Suspect]
     Dosage: PO
     Route: 048
  2. TOPROL-XL [Suspect]
  3. LEVOXYL [Concomitant]
  4. PROTONIX [Concomitant]
  5. ZOCOR [Concomitant]
  6. ASPIRIN [Concomitant]

REACTIONS (2)
  - BRADYCARDIA [None]
  - HYPOTENSION [None]
